FAERS Safety Report 17353625 (Version 5)
Quarter: 2023Q4

REPORT INFORMATION
  Report Type: Spontaneous
  Country: US (occurrence: US)
  Receive Date: 20200131
  Receipt Date: 20231218
  Transmission Date: 20240109
  Serious: Yes (Other)
  Sender: FDA-Public Use
  Company Number: US-GILEAD-2020-0448749

PATIENT
  Age: 46 Year
  Sex: Male
  Weight: 52.154 kg

DRUGS (68)
  1. VIREAD [Suspect]
     Active Substance: TENOFOVIR DISOPROXIL FUMARATE
     Indication: HIV infection
     Dosage: UNK
     Route: 048
  2. ATRIPLA [Suspect]
     Active Substance: EFAVIRENZ\EMTRICITABINE\TENOFOVIR DISOPROXIL FUMARATE
     Indication: HIV infection
     Dosage: UNK
     Route: 048
     Dates: start: 2010, end: 201005
  3. ATRIPLA [Suspect]
     Active Substance: EFAVIRENZ\EMTRICITABINE\TENOFOVIR DISOPROXIL FUMARATE
     Dosage: UNK
     Route: 048
     Dates: start: 201103, end: 201110
  4. COMPLERA [Suspect]
     Active Substance: EMTRICITABINE\RILPIVIRINE HYDROCHLORIDE\TENOFOVIR DISOPROXIL FUMARATE
     Indication: HIV infection
     Dosage: UNK
     Route: 048
     Dates: start: 20111011, end: 2012
  5. COMPLERA [Suspect]
     Active Substance: EMTRICITABINE\RILPIVIRINE HYDROCHLORIDE\TENOFOVIR DISOPROXIL FUMARATE
     Dosage: UNK
     Route: 048
     Dates: start: 20111011, end: 201612
  6. TRUVADA [Suspect]
     Active Substance: EMTRICITABINE\TENOFOVIR DISOPROXIL FUMARATE
     Indication: HIV infection
     Dosage: UNK
     Route: 065
     Dates: start: 2012, end: 2013
  7. TRUVADA [Suspect]
     Active Substance: EMTRICITABINE\TENOFOVIR DISOPROXIL FUMARATE
     Dosage: UNK
     Route: 048
     Dates: start: 20120627
  8. DESCOVY [Concomitant]
     Active Substance: EMTRICITABINE\TENOFOVIR ALAFENAMIDE FUMARATE
  9. EMTRIVA [Concomitant]
     Active Substance: EMTRICITABINE
  10. TIVICAY [Concomitant]
     Active Substance: DOLUTEGRAVIR SODIUM
  11. ALBUTEROL [Concomitant]
     Active Substance: ALBUTEROL
  12. ASPIRIN [Concomitant]
     Active Substance: ASPIRIN
  13. CALCIUM [Concomitant]
     Active Substance: CALCIUM
  14. POTASSIUM [Concomitant]
     Active Substance: POTASSIUM
  15. PREDNISONE [Concomitant]
     Active Substance: PREDNISONE
  16. SPIRIVA [Concomitant]
     Active Substance: TIOTROPIUM BROMIDE MONOHYDRATE
  17. SYMBICORT [Concomitant]
     Active Substance: BUDESONIDE\FORMOTEROL FUMARATE DIHYDRATE
  18. VITAMIN D3 [Concomitant]
     Active Substance: CHOLECALCIFEROL
  19. ALENDRONATE [Concomitant]
     Active Substance: ALENDRONATE SODIUM
  20. AMLODIPINE BESYLATE [Concomitant]
     Active Substance: AMLODIPINE BESYLATE
  21. AMOXICILLIN [Concomitant]
     Active Substance: AMOXICILLIN
  22. ATAZANAVIR [Concomitant]
     Active Substance: ATAZANAVIR
  23. ATORVASTATIN [Concomitant]
     Active Substance: ATORVASTATIN
  24. AZITHROMYCIN [Concomitant]
     Active Substance: AZITHROMYCIN
  25. BENZONATATE [Concomitant]
     Active Substance: BENZONATATE
  26. BUDESONIDE [Concomitant]
     Active Substance: BUDESONIDE
  27. BUMETANIDE [Concomitant]
     Active Substance: BUMETANIDE
  28. CALCITRIOL [Concomitant]
     Active Substance: CALCITRIOL
  29. CARVEDILOL [Concomitant]
     Active Substance: CARVEDILOL
  30. CEFPODOXIME [Concomitant]
     Active Substance: CEFPODOXIME
  31. CEFUROXIME [Concomitant]
     Active Substance: CEFUROXIME
  32. CEPHALEXIN [Concomitant]
     Active Substance: CEPHALEXIN
  33. CLOPIDOGREL BISULFATE [Concomitant]
     Active Substance: CLOPIDOGREL BISULFATE
  34. DIPHENHYDRAMINE [Concomitant]
     Active Substance: DIPHENHYDRAMINE
  35. EMTRICITABINE [Concomitant]
     Active Substance: EMTRICITABINE
  36. ERGOCALCIFEROL [Concomitant]
     Active Substance: ERGOCALCIFEROL
  37. ETHACRYNIC [Concomitant]
  38. DOXYCYCLINE [Concomitant]
     Active Substance: DOXYCYCLINE
  39. FLUCONAZOLE [Concomitant]
     Active Substance: FLUCONAZOLE
  40. FUROSEMIDE [Concomitant]
     Active Substance: FUROSEMIDE
  41. GUAIFENESIN [Concomitant]
     Active Substance: GUAIFENESIN
  42. ACETAMINOPHEN\HYDROCODONE [Concomitant]
     Active Substance: ACETAMINOPHEN\HYDROCODONE
  43. LAMIVUDINE [Concomitant]
     Active Substance: LAMIVUDINE
  44. LEVOFLOXACIN [Concomitant]
     Active Substance: LEVOFLOXACIN
  45. LEVOTHYROXINE [Concomitant]
     Active Substance: LEVOTHYROXINE
  46. LISINOPRIL [Concomitant]
     Active Substance: LISINOPRIL
  47. MELATONIN [Concomitant]
     Active Substance: MELATONIN
  48. METOPROLOL SUCCINATE [Concomitant]
     Active Substance: METOPROLOL SUCCINATE
  49. MIRTAZAPINE [Concomitant]
     Active Substance: MIRTAZAPINE
  50. MOXIFLOXACIN [Concomitant]
     Active Substance: MOXIFLOXACIN
  51. NICOTINE [Concomitant]
     Active Substance: NICOTINE
  52. NITROGLYCERIN [Concomitant]
     Active Substance: NITROGLYCERIN
  53. OMEPRAZOLE [Concomitant]
     Active Substance: OMEPRAZOLE
  54. ONDANSETRON [Concomitant]
     Active Substance: ONDANSETRON
  55. OSELTAMIVIR [Concomitant]
     Active Substance: OSELTAMIVIR
  56. PRAVASTATIN [Concomitant]
     Active Substance: PRAVASTATIN
  57. RILPIVIRINE [Concomitant]
     Active Substance: RILPIVIRINE
  58. RISEDRONATE SODIUM [Concomitant]
     Active Substance: RISEDRONATE SODIUM
  59. SUSTIVA [Concomitant]
     Active Substance: EFAVIRENZ
  60. SENNOSIDES [Concomitant]
     Active Substance: SENNOSIDES
  61. STAVUDINE [Concomitant]
     Active Substance: STAVUDINE
  62. SULFAMETHOXAZOLE [Concomitant]
     Active Substance: SULFAMETHOXAZOLE
  63. TAMSULOSIN [Concomitant]
     Active Substance: TAMSULOSIN
  64. TIOTROPIUM [Concomitant]
     Active Substance: TIOTROPIUM
  65. COMBIVIR [Concomitant]
     Active Substance: LAMIVUDINE\ZIDOVUDINE
  66. EPIVIR [Concomitant]
     Active Substance: LAMIVUDINE
  67. KALETRA [Concomitant]
     Active Substance: LOPINAVIR\RITONAVIR
  68. ZERIT [Concomitant]
     Active Substance: STAVUDINE

REACTIONS (10)
  - Clavicle fracture [Unknown]
  - Osteoporosis [Not Recovered/Not Resolved]
  - Chronic kidney disease [Unknown]
  - Economic problem [Not Recovered/Not Resolved]
  - Anhedonia [Not Recovered/Not Resolved]
  - Blood creatinine decreased [Unknown]
  - Emotional distress [Not Recovered/Not Resolved]
  - Bone demineralisation [Unknown]
  - Anxiety [Not Recovered/Not Resolved]
  - Pain [Not Recovered/Not Resolved]

NARRATIVE: CASE EVENT DATE: 20120601
